FAERS Safety Report 6922980-2 (Version None)
Quarter: 2010Q3

REPORT INFORMATION
  Report Type: 
  Country: None (occurrence: None)
  Receive Date: 20100813
  Receipt Date: 20100804
  Transmission Date: 20110219
  Serious: Yes (Hospitalization)
  Sender: FDA-Public Use
  Company Number: FR-PFIZER INC-2010100890

PATIENT
  Age: 92 Year
  Sex: Male

DRUGS (7)
  1. ATARAX [Suspect]
     Dosage: UNK
     Route: 048
     Dates: start: 20100201
  2. SPIRONOLACTONE [Suspect]
     Dosage: UNK
     Route: 048
     Dates: start: 20090101
  3. ESCITALOPRAM [Suspect]
     Dosage: UNK
     Route: 048
     Dates: start: 20090601
  4. AERIUS [Suspect]
     Dosage: UNK
     Route: 048
     Dates: start: 20071001
  5. XATRAL [Suspect]
     Dosage: UNK
     Route: 048
     Dates: start: 20080301
  6. KARDEGIC [Suspect]
     Dosage: UNK
     Dates: start: 20080501
  7. PANTOPRAZOLE [Concomitant]

REACTIONS (3)
  - LICHENOID KERATOSIS [None]
  - PRURIGO [None]
  - TOXIC SKIN ERUPTION [None]
